FAERS Safety Report 6510857-6 (Version None)
Quarter: 2009Q4

REPORT INFORMATION
  Report Type: 
  Country: None (occurrence: None)
  Receive Date: 20091222
  Receipt Date: 20090112
  Transmission Date: 20100525
  Serious: No
  Sender: FDA-Public Use
  Company Number: US-ASTRAZENECA-2009UW00982

PATIENT
  Age: 67 Year
  Sex: Female
  Weight: 81.6 kg

DRUGS (4)
  1. CRESTOR [Suspect]
     Dosage: 5 MG
     Route: 048
     Dates: start: 20081215
  2. ASPIRIN [Concomitant]
  3. GLYBURIDE WITH METFORMIN [Concomitant]
  4. MULTI-VITAMIN [Concomitant]

REACTIONS (5)
  - ABDOMINAL PAIN [None]
  - FLATULENCE [None]
  - GAIT DISTURBANCE [None]
  - HEADACHE [None]
  - MYALGIA [None]
